FAERS Safety Report 6635750-X (Version None)
Quarter: 2010Q1

REPORT INFORMATION
  Report Type: 
  Country: None (occurrence: None)
  Receive Date: 20100310
  Receipt Date: 20100226
  Transmission Date: 20100710
  Serious: Yes (Other)
  Sender: FDA-Public Use
  Company Number: LEO-2010-00113

PATIENT
  Age: 76 Year
  Sex: Female

DRUGS (1)
  1. INNOHEP [Suspect]

REACTIONS (3)
  - ANAPHYLACTIC REACTION [None]
  - ERYTHEMA [None]
  - SWELLING FACE [None]
